FAERS Safety Report 13753374 (Version 2)
Quarter: 2017Q3

REPORT INFORMATION
  Report Type: Report from Study
  Country: US (occurrence: US)
  Receive Date: 20170713
  Receipt Date: 20170823
  Transmission Date: 20171127
  Serious: Yes (Hospitalization)
  Sender: FDA-Public Use
  Company Number: US-JNJFOC-20160726968

PATIENT
  Sex: Male

DRUGS (6)
  1. METOPROLOL. [Concomitant]
     Active Substance: METOPROLOL
  2. PANTOPRAZOLE [Concomitant]
     Active Substance: PANTOPRAZOLE
  3. IMBRUVICA [Suspect]
     Active Substance: IBRUTINIB
     Indication: LYMPHOCYTIC LEUKAEMIA
     Route: 048
  4. IMBRUVICA [Suspect]
     Active Substance: IBRUTINIB
     Indication: LYMPHOCYTIC LEUKAEMIA
     Route: 048
     Dates: start: 201604
  5. WARFARIN [Concomitant]
     Active Substance: WARFARIN
  6. ZOCOR [Concomitant]
     Active Substance: SIMVASTATIN

REACTIONS (16)
  - Rash [Not Recovered/Not Resolved]
  - Hypotension [Not Recovered/Not Resolved]
  - Incorrect dose administered [Unknown]
  - Contusion [Not Recovered/Not Resolved]
  - Off label use [Unknown]
  - Head injury [Not Recovered/Not Resolved]
  - Laceration [Recovered/Resolved]
  - Dry skin [Not Recovered/Not Resolved]
  - Rash vesicular [Unknown]
  - Rash macular [Not Recovered/Not Resolved]
  - Loss of consciousness [Unknown]
  - Acne [Not Recovered/Not Resolved]
  - Constipation [Unknown]
  - Fall [Not Recovered/Not Resolved]
  - Wound infection [Recovered/Resolved]
  - Cheilitis [Not Recovered/Not Resolved]
